FAERS Safety Report 7344610-0 (Version None)
Quarter: 2011Q1

REPORT INFORMATION
  Report Type: 
  Country: None (occurrence: None)
  Receive Date: 20110307
  Receipt Date: 20110307
  Transmission Date: 20110831
  Serious: Yes (Hospitalization)
  Sender: FDA-Public Use
  Company Number: None

PATIENT
  Age: 64 Year
  Sex: Male
  Weight: 97.5234 kg

DRUGS (3)
  1. DIVALPROEX EXTENDED-RELEASE [Suspect]
     Indication: CONVULSION PROPHYLAXIS
     Dosage: 1000MG HS PO 1 DOSE
     Route: 048
     Dates: start: 20110207, end: 20110207
  2. BUPRENORPHINE [Suspect]
     Indication: DRUG DETOXIFICATION
     Dosage: 4MG TID SL 1 DOSE
     Route: 060
     Dates: start: 20110208, end: 20110208
  3. PHENOBARBITAL [Concomitant]

REACTIONS (1)
  - FALL [None]
